FAERS Safety Report 5587554-7 (Version None)
Quarter: 2008Q1

REPORT INFORMATION
  Report Type: 
  Country: None (occurrence: None)
  Receive Date: 20080107
  Receipt Date: 20060511
  Transmission Date: 20080703
  Serious: No
  Sender: FDA-Public Use
  Company Number: 2006VX001741

PATIENT
  Age: 77 Year
  Sex: Male
  Weight: 91 kg

DRUGS (14)
  1. LIBRAX [Suspect]
     Dosage: ; BID; PO
     Route: 048
  2. NITROGLYCERIN [Concomitant]
  3. FOSINOPRIL SODIUM [Concomitant]
  4. METAMUCIL [Concomitant]
  5. ATROVENT [Concomitant]
  6. PAROXETINE [Concomitant]
  7. WARFARIN SODIUM [Concomitant]
  8. DIGOXIN [Concomitant]
  9. LEVOTHYROXINE SODIUM [Concomitant]
  10. LASIX [Concomitant]
  11. AMIODARONE HCL [Concomitant]
  12. HUMULIN L [Concomitant]
  13. BUDESONIDE [Concomitant]
  14. VENTOLIN [Concomitant]

REACTIONS (8)
  - APNOEA [None]
  - ASTHENIA [None]
  - BRADYCARDIA [None]
  - COLD SWEAT [None]
  - DEPRESSED LEVEL OF CONSCIOUSNESS [None]
  - HYPERHIDROSIS [None]
  - HYPOGLYCAEMIA [None]
  - SOMNOLENCE [None]
